FAERS Safety Report 10236259 (Version 1)
Quarter: 2014Q2

REPORT INFORMATION
  Report Type: Spontaneous
  Country: FR (occurrence: FR)
  Receive Date: 20140613
  Receipt Date: 20140613
  Transmission Date: 20141212
  Serious: Yes (Other)
  Sender: FDA-Public Use
  Company Number: FR-ROXANE LABORATORIES, INC.-2014-RO-00888RO

PATIENT
  Age: 49 Year
  Sex: Female

DRUGS (4)
  1. AZATHIOPRINE [Suspect]
     Indication: IMMUNOSUPPRESSANT DRUG THERAPY
     Route: 065
  2. PREDNISONE [Suspect]
     Indication: IMMUNOSUPPRESSANT DRUG THERAPY
     Route: 048
  3. TACROLIMUS [Suspect]
     Indication: IMMUNOSUPPRESSANT DRUG THERAPY
     Route: 065
  4. RITUXIMAB [Suspect]
     Indication: HENOCH-SCHONLEIN PURPURA
     Dosage: 1000 MG
     Route: 042

REACTIONS (2)
  - Henoch-Schonlein purpura [Recovered/Resolved]
  - Gastroenteritis norovirus [Recovered/Resolved]
